FAERS Safety Report 8708391 (Version 3)
Quarter: 2012Q4

REPORT INFORMATION
  Report Type: 
  Country: GB (occurrence: GB)
  Receive Date: 20120806
  Receipt Date: 20120930
  Transmission Date: 20130627
  Serious: Yes (Other)
  Sender: FDA-Public Use
  Company Number: GB-MYLANLABS-2012S1014950

PATIENT
  Age: 39 Year
  Sex: Male
  Weight: 64 kg

DRUGS (3)
  1. LAMOTRIGINE [Suspect]
     Indication: EPILEPSY
     Dates: start: 2008
  2. LAMOTRIGINE [Suspect]
     Indication: EPILEPSY
  3. LORATADINE [Concomitant]
     Indication: SEASONAL ALLERGY

REACTIONS (11)
  - Dermatitis allergic [Recovered/Resolved]
  - Somnolence [Unknown]
  - Slow response to stimuli [Unknown]
  - Fatigue [Unknown]
  - Aggression [Recovered/Resolved]
  - Rash macular [Unknown]
  - Epilepsy [Unknown]
  - Food interaction [Unknown]
  - Mood swings [Recovered/Resolved]
  - Dysarthria [Unknown]
  - Drug ineffective [Unknown]
